FAERS Safety Report 21584695 (Version 1)
Quarter: 2022Q4

REPORT INFORMATION
  Report Type: Spontaneous
  Country: US (occurrence: None)
  Receive Date: 20221110
  Receipt Date: 20221110
  Transmission Date: 20230113
  Serious: No
  Sender: FDA-Public Use
  Company Number: None

PATIENT
  Sex: Male

DRUGS (1)
  1. LUMAKRAS [Suspect]
     Active Substance: SOTORASIB

REACTIONS (6)
  - Fall [None]
  - Limb injury [None]
  - Thrombosis [None]
  - Infection [None]
  - Wound [None]
  - Eructation [None]
